FAERS Safety Report 10476456 (Version 2)
Quarter: 2014Q4

REPORT INFORMATION
  Report Type: Spontaneous
  Country: US (occurrence: US)
  Receive Date: 20140925
  Receipt Date: 20141017
  Transmission Date: 20150528
  Serious: Yes (Other)
  Sender: FDA-Public Use
  Company Number: US-GLAXOSMITHKLINE-A1090872A

PATIENT
  Age: 81 Year
  Sex: Female

DRUGS (7)
  1. ADVAIR HFA [Suspect]
     Active Substance: FLUTICASONE PROPIONATE\SALMETEROL XINAFOATE
     Indication: CHRONIC OBSTRUCTIVE PULMONARY DISEASE
     Dosage: 2 DF, BID
     Route: 055
  2. TOPROL XL [Concomitant]
     Active Substance: METOPROLOL SUCCINATE
  3. PREDNISONE. [Concomitant]
     Active Substance: PREDNISONE
  4. CRESTOR [Concomitant]
     Active Substance: ROSUVASTATIN CALCIUM
  5. MYRBETRIQ [Concomitant]
     Active Substance: MIRABEGRON
  6. BABY ASPIRIN [Concomitant]
     Active Substance: ASPIRIN
  7. VITAMINS [Concomitant]
     Active Substance: VITAMINS

REACTIONS (2)
  - Glaucoma surgery [Recovering/Resolving]
  - Intraocular pressure test abnormal [Recovering/Resolving]

NARRATIVE: CASE EVENT DATE: 201408
